FAERS Safety Report 9422942 (Version 1)
Quarter: 2013Q3

REPORT INFORMATION
  Report Type: Spontaneous
  Country: FR (occurrence: None)
  Receive Date: 20130710
  Receipt Date: 20130710
  Transmission Date: 20140515
  Serious: Yes (Hospitalization)
  Sender: FDA-Public Use
  Company Number: 2013036790

PATIENT
  Age: 72 Year
  Sex: Male

DRUGS (1)
  1. HIZENTRA (IMMUNOGLOBULIN HUMAN NORMAL) [Suspect]
     Indication: SECONDARY IMMUNODEFICIENCY
     Route: 058
     Dates: start: 20130320, end: 20130415

REACTIONS (4)
  - Wheezing [None]
  - Organising pneumonia [None]
  - Back pain [None]
  - Hyperthermia [None]
